FAERS Safety Report 13191598 (Version 1)
Quarter: 2017Q1

REPORT INFORMATION
  Report Type: Spontaneous
  Country: US (occurrence: US)
  Receive Date: 20170207
  Receipt Date: 20170207
  Transmission Date: 20170428
  Serious: Yes (Hospitalization, Other)
  Sender: FDA-Public Use
  Company Number: US-ABBVIE-17K-163-1856014-00

PATIENT
  Sex: Male

DRUGS (1)
  1. HUMIRA [Suspect]
     Active Substance: ADALIMUMAB
     Indication: MATERNAL EXPOSURE TIMING UNSPECIFIED
     Route: 064

REACTIONS (9)
  - Transverse presentation [Recovered/Resolved]
  - Speech disorder developmental [Not Recovered/Not Resolved]
  - Congenital central nervous system anomaly [Recovered/Resolved]
  - Cardiac septal defect [Not Recovered/Not Resolved]
  - Cerebral haemorrhage foetal [Recovered/Resolved]
  - Foetal exposure during pregnancy [Unknown]
  - Developmental delay [Recovering/Resolving]
  - Seizure [Recovered/Resolved]
  - Cerebral palsy [Not Recovered/Not Resolved]

NARRATIVE: CASE EVENT DATE: 2015
